FAERS Safety Report 13181821 (Version 1)
Quarter: 2017Q1

REPORT INFORMATION
  Report Type: Spontaneous
  Country: US (occurrence: US)
  Receive Date: 20170202
  Receipt Date: 20170202
  Transmission Date: 20170428
  Serious: No
  Sender: FDA-Public Use
  Company Number: US-IMPAX LABORATORIES, INC-2016-IPXL-01427

PATIENT
  Age: 61 Year
  Sex: Male

DRUGS (5)
  1. AMANTADINE [Concomitant]
     Active Substance: AMANTADINE
     Indication: PRODUCT USED FOR UNKNOWN INDICATION
     Route: 065
  2. RYTARY [Suspect]
     Active Substance: CARBIDOPA\LEVODOPA
     Indication: PARKINSON^S DISEASE
     Dosage: (23.75/95 MG) 2 CAPSULES 5 TIMES A DAY
     Route: 048
     Dates: start: 201608, end: 2016
  3. RYTARY [Suspect]
     Active Substance: CARBIDOPA\LEVODOPA
     Dosage: 7 CAPSULES A DAY
     Route: 048
     Dates: start: 2016, end: 2016
  4. RYTARY [Suspect]
     Active Substance: CARBIDOPA\LEVODOPA
     Dosage: 6 CAPSULES A DAY (2 PILLS AT 7 AM, 1 PILL AT 11 AM, 2 PILLS AT 3 PM AND 1 PILL AT 7 PM)
     Route: 048
     Dates: start: 201611
  5. COMTAN [Concomitant]
     Active Substance: ENTACAPONE
     Indication: ENZYME INHIBITION
     Dosage: UNK
     Route: 065

REACTIONS (3)
  - Gait disturbance [Recovered/Resolved]
  - Dysstasia [Recovered/Resolved]
  - Dyskinesia [Recovered/Resolved]

NARRATIVE: CASE EVENT DATE: 201609
